FAERS Safety Report 4998635-0 (Version None)
Quarter: 2006Q2

REPORT INFORMATION
  Report Type: 
  Country: None (occurrence: None)
  Receive Date: 20060510
  Receipt Date: 20060501
  Transmission Date: 20061013
  Serious: Yes (Hospitalization)
  Sender: FDA-Public Use
  Company Number: US-KINGPHARMUSA00001-K200600550

PATIENT
  Age: 78 Year
  Sex: Male

DRUGS (5)
  1. ALTACE [Suspect]
     Dosage: 5 MG, QD
     Route: 048
     Dates: end: 20060315
  2. ACETAMINOPHEN [Suspect]
     Dosage: 500 MG, QD
     Route: 048
     Dates: end: 20060315
  3. SEROPLEX [Suspect]
     Dosage: 1 U, QD
     Route: 048
     Dates: end: 20060315
  4. HEXAPNEUMINE SYRUP /OLD FORM/ [Suspect]
     Route: 048
     Dates: end: 20060315
  5. METFORMIN [Suspect]
     Dosage: 850 MG, TID
     Route: 048
     Dates: end: 20060313

REACTIONS (1)
  - LACTIC ACIDOSIS [None]
